FAERS Safety Report 6486918-7 (Version None)
Quarter: 2009Q4

REPORT INFORMATION
  Report Type: 
  Country: None (occurrence: None)
  Receive Date: 20091210
  Receipt Date: 20091201
  Transmission Date: 20100525
  Serious: Yes (Hospitalization)
  Sender: FDA-Public Use
  Company Number: US-SANOFI-AVENTIS-2009SA006503

PATIENT
  Age: 89 Year
  Sex: Female

DRUGS (1)
  1. CARAC [Suspect]
     Route: 061
     Dates: start: 20091103, end: 20091112

REACTIONS (7)
  - ASTHENIA [None]
  - CEREBROVASCULAR ACCIDENT [None]
  - COORDINATION ABNORMAL [None]
  - FAECAL INCONTINENCE [None]
  - MALAISE [None]
  - PAIN [None]
  - URINARY INCONTINENCE [None]
